FAERS Safety Report 23458452 (Version 2)
Quarter: 2024Q1

REPORT INFORMATION
  Report Type: Report from Study
  Country: AR (occurrence: AR)
  Receive Date: 20240130
  Receipt Date: 20240201
  Transmission Date: 20240410
  Serious: Yes (Hospitalization, Other)
  Sender: FDA-Public Use
  Company Number: AR-UNITED THERAPEUTICS-UNT-2024-002176

PATIENT
  Age: 66 Year
  Sex: Female

DRUGS (1)
  1. TREPROSTINIL SODIUM [Suspect]
     Active Substance: TREPROSTINIL SODIUM
     Indication: Pulmonary arterial hypertension
     Dosage: UNK, CONTINUING
     Route: 058
     Dates: start: 20211220

REACTIONS (2)
  - Cellulitis staphylococcal [Not Recovered/Not Resolved]
  - Infusion site cellulitis [Not Recovered/Not Resolved]

NARRATIVE: CASE EVENT DATE: 20240108
